FAERS Safety Report 9300506 (Version 1)
Quarter: 2013Q2

REPORT INFORMATION
  Report Type: Spontaneous
  Country: GB (occurrence: GB)
  Receive Date: 20130521
  Receipt Date: 20130521
  Transmission Date: 20140414
  Serious: Yes (Hospitalization, Other)
  Sender: FDA-Public Use
  Company Number: GB-BRISTOL-MYERS SQUIBB COMPANY-18883561

PATIENT
  Age: 51 Year
  Sex: Male
  Weight: 74.5 kg

DRUGS (4)
  1. REYATAZ [Suspect]
     Indication: RETROVIRAL INFECTION
     Route: 048
     Dates: start: 20080214, end: 20130131
  2. ABACAVIR + LAMIVUDINE [Suspect]
  3. TENOFOVIR [Suspect]
  4. RITONAVIR [Suspect]

REACTIONS (3)
  - Renal failure acute [Unknown]
  - Nephrolithiasis [Recovering/Resolving]
  - Abdominal pain lower [Unknown]
